FAERS Safety Report 25725324 (Version 1)
Quarter: 2025Q3

REPORT INFORMATION
  Report Type: Report from Study
  Country: CA (occurrence: CA)
  Receive Date: 20250826
  Receipt Date: 20250826
  Transmission Date: 20251020
  Serious: Yes (Hospitalization)
  Sender: ABBVIE
  Company Number: CA-ABBVIE-6429385

PATIENT
  Age: 68 Year
  Sex: Female

DRUGS (1)
  1. RINVOQ [Suspect]
     Active Substance: UPADACITINIB
     Indication: Crohn^s disease
     Route: 048
     Dates: start: 20250611

REACTIONS (3)
  - SARS-CoV-2 test positive [Unknown]
  - Crohn^s disease [Unknown]
  - Anaemia [Unknown]

NARRATIVE: CASE EVENT DATE: 20250818
